FAERS Safety Report 25003357 (Version 2)
Quarter: 2025Q2

REPORT INFORMATION
  Report Type: Report from Study
  Country: US (occurrence: US)
  Receive Date: 20250224
  Receipt Date: 20250415
  Transmission Date: 20250717
  Serious: Yes (Other)
  Sender: TAKEDA
  Company Number: US-TAKEDA-2025TUS019178

PATIENT
  Sex: Female

DRUGS (9)
  1. VEDOLIZUMAB [Suspect]
     Active Substance: VEDOLIZUMAB
     Indication: Crohn^s disease
  2. VEDOLIZUMAB [Suspect]
     Active Substance: VEDOLIZUMAB
  3. ADVIL [Concomitant]
     Active Substance: IBUPROFEN
     Indication: Migraine
  4. BUDESONIDE [Concomitant]
     Active Substance: BUDESONIDE
     Indication: Crohn^s disease
  5. VALACYCLOVIR [Concomitant]
     Active Substance: VALACYCLOVIR HYDROCHLORIDE
     Indication: Aphthous ulcer
  6. HUMIRA [Concomitant]
     Active Substance: ADALIMUMAB
  7. REMICADE [Concomitant]
     Active Substance: INFLIXIMAB
  8. MESALAMINE [Concomitant]
     Active Substance: MESALAMINE
  9. IMURAN [Concomitant]
     Active Substance: AZATHIOPRINE

REACTIONS (1)
  - Breast cancer female [Not Recovered/Not Resolved]
